FAERS Safety Report 11274060 (Version 1)
Quarter: 2015Q3

REPORT INFORMATION
  Report Type: Spontaneous
  Country: HR (occurrence: HR)
  Receive Date: 20150715
  Receipt Date: 20150715
  Transmission Date: 20151125
  Serious: Yes (Life-Threatening, Hospitalization, Other)
  Sender: FDA-Public Use
  Company Number: HR-GLAXOSMITHKLINE-HR2015100323

PATIENT
  Age: 5 Year
  Sex: Male
  Weight: 21 kg

DRUGS (3)
  1. AERIUS [Concomitant]
     Active Substance: DESLORATADINE
     Indication: SEASONAL ALLERGY
     Dosage: 0,5 MG/ML; 5 ML NA DAN
     Route: 048
     Dates: start: 20150520
  2. ZINNAT [Suspect]
     Active Substance: CEFUROXIME AXETIL
     Indication: URINARY TRACT INFECTION
     Dosage: 125MG/5ML; 15 ML
     Route: 048
     Dates: start: 20150616
  3. SERETIDE [Concomitant]
     Active Substance: FLUTICASONE FUROATE\SALMETEROL XINAFOATE
     Indication: ASTHMA
     Dosage: 2X1 POTISAK
     Route: 055
     Dates: start: 20150520

REACTIONS (4)
  - Erythema [Recovered/Resolved]
  - Asphyxia [Recovered/Resolved]
  - Face oedema [Recovering/Resolving]
  - Anaphylactic shock [Recovered/Resolved]

NARRATIVE: CASE EVENT DATE: 20150616
